FAERS Safety Report 8361985-4 (Version None)
Quarter: 2012Q2

REPORT INFORMATION
  Report Type: 
  Country: None (occurrence: None)
  Receive Date: 20120515
  Receipt Date: 20120507
  Transmission Date: 20120825
  Serious: Yes (Hospitalization)
  Sender: FDA-Public Use
  Company Number: FR-TEVA-337488ISR

PATIENT
  Sex: Female
  Weight: 48 kg

DRUGS (5)
  1. CEP-9722 [Suspect]
     Indication: NEOPLASM
     Dosage: 600 MILLIGRAM;
     Route: 048
     Dates: start: 20120215, end: 20120424
  2. BISOPROLOL FUMARATE [Concomitant]
     Indication: TACHYCARDIA
     Dosage: 5 MILLIGRAM;
     Route: 048
     Dates: start: 20100101
  3. GEMCITABINE [Suspect]
     Route: 042
     Dates: start: 20120117, end: 20120418
  4. CISPLATIN [Suspect]
     Route: 042
     Dates: start: 20120117, end: 20120418
  5. ALPRAZOLAM [Concomitant]
     Indication: PROPHYLAXIS
     Dosage: .5 MILLIGRAM;
     Route: 048
     Dates: start: 20120118

REACTIONS (1)
  - THROMBOSIS [None]
